FAERS Safety Report 17850776 (Version 1)
Quarter: 2020Q2

REPORT INFORMATION
  Report Type: Spontaneous
  Country: US (occurrence: US)
  Receive Date: 20200602
  Receipt Date: 20200602
  Transmission Date: 20200714
  Serious: No
  Sender: FDA-Public Use
  Company Number: US-SA-2020SA138449

PATIENT

DRUGS (9)
  1. LORATADINE. [Concomitant]
     Active Substance: LORATADINE
  2. EUCRISA [Concomitant]
     Active Substance: CRISABOROLE
  3. EPIPEN [Concomitant]
     Active Substance: EPINEPHRINE
  4. MUPIROCIN. [Concomitant]
     Active Substance: MUPIROCIN
  5. TRIAMCINOLONE [Concomitant]
     Active Substance: TRIAMCINOLONE
  6. CLOBETASOL [Concomitant]
     Active Substance: CLOBETASOL
  7. TACROLIMUS. [Concomitant]
     Active Substance: TACROLIMUS
  8. NYSTATIN. [Concomitant]
     Active Substance: NYSTATIN
  9. DUPIXENT [Suspect]
     Active Substance: DUPILUMAB
     Indication: DERMATITIS ATOPIC
     Dosage: 300 MG, QOW
     Route: 058
     Dates: start: 20200501

REACTIONS (3)
  - Eye swelling [Not Recovered/Not Resolved]
  - Eye pruritus [Not Recovered/Not Resolved]
  - Streptococcal infection [Not Recovered/Not Resolved]

NARRATIVE: CASE EVENT DATE: 20200525
